FAERS Safety Report 7207179-7 (Version None)
Quarter: 2010Q4

REPORT INFORMATION
  Report Type: 
  Country: None (occurrence: None)
  Receive Date: 20101217
  Receipt Date: 20101202
  Transmission Date: 20110411
  Serious: Yes (Other)
  Sender: FDA-Public Use
  Company Number: 023552

PATIENT
  Age: 13 Year
  Sex: Male
  Weight: 31.2 kg

DRUGS (4)
  1. EQUASYM (EQUASYM XL) [Suspect]
     Indication: ATTENTION DEFICIT/HYPERACTIVITY DISORDER
     Dosage: (50 MG QD ORAL)
     Route: 048
     Dates: start: 20060901
  2. PRED FORTE [Suspect]
     Indication: PRODUCT USED FOR UNKNOWN INDICATION
     Dosage: (OPHTHALMIC)
     Route: 047
  3. RISPERIDONE [Suspect]
     Indication: ATTENTION DEFICIT/HYPERACTIVITY DISORDER
     Dosage: (0.5 MG ORAL)
     Route: 048
     Dates: start: 20060601
  4. VEXOL [Suspect]
     Indication: PRODUCT USED FOR UNKNOWN INDICATION
     Dosage: (OPHTHALMIC)
     Route: 047

REACTIONS (2)
  - BENIGN INTRACRANIAL HYPERTENSION [None]
  - EYE SWELLING [None]
